FAERS Safety Report 15751880 (Version 2)
Quarter: 2019Q1

REPORT INFORMATION
  Report Type: Spontaneous
  Country: TH (occurrence: TH)
  Receive Date: 20181221
  Receipt Date: 20190201
  Transmission Date: 20190417
  Serious: Yes (Hospitalization)
  Sender: FDA-Public Use
  Company Number: TH-EISAI MEDICAL RESEARCH-EC-2018-049449

PATIENT
  Age: 58 Year
  Sex: Male

DRUGS (3)
  1. LENVIMA [Suspect]
     Active Substance: LENVATINIB
     Indication: THYROID CANCER
     Route: 048
     Dates: start: 20181116, end: 20181217
  2. INNOHEP [Interacting]
     Active Substance: TINZAPARIN SODIUM
     Indication: ANTICOAGULANT THERAPY
     Dosage: UNKNOWN
     Route: 042
     Dates: end: 20181217
  3. LENVIMA [Interacting]
     Active Substance: LENVATINIB
     Indication: HEPATOCELLULAR CARCINOMA

REACTIONS (5)
  - Haemoptysis [Recovered/Resolved]
  - Drug interaction [Recovered/Resolved]
  - Cardiac arrest [Recovered/Resolved]
  - Upper gastrointestinal haemorrhage [Recovered/Resolved]
  - Product use in unapproved indication [Recovered/Resolved]

NARRATIVE: CASE EVENT DATE: 20181216
